FAERS Safety Report 13905933 (Version 1)
Quarter: 2017Q3

REPORT INFORMATION
  Report Type: Spontaneous
  Country: JP (occurrence: JP)
  Receive Date: 20170825
  Receipt Date: 20170825
  Transmission Date: 20171127
  Serious: Yes (Other)
  Sender: FDA-Public Use
  Company Number: JP-TEVA-799100ROM

PATIENT
  Age: 38 Year
  Sex: Male

DRUGS (5)
  1. FLUOROURACIL. [Interacting]
     Active Substance: FLUOROURACIL
     Indication: COLON CANCER METASTATIC
     Dosage: 4350MG, AS A PART OF MFOLFOX6 THERAPY
     Route: 065
  2. GIMERACIL/OTERACIL/TEGAFUR [Interacting]
     Active Substance: GIMERACIL\OTERACIL\TEGAFUR
     Indication: COLON CANCER METASTATIC
     Dosage: 100MG
     Route: 065
  3. LEVOFOLINIC ACID [Suspect]
     Active Substance: LEVOLEUCOVORIN
     Indication: COLON CANCER METASTATIC
     Dosage: 350MG
     Route: 065
  4. OXALIPLATIN. [Suspect]
     Active Substance: OXALIPLATIN
     Indication: COLON CANCER METASTATIC
     Dosage: 150MG
     Route: 065
  5. OXALIPLATIN. [Suspect]
     Active Substance: OXALIPLATIN
     Dosage: 230MG
     Route: 065

REACTIONS (5)
  - Dermatitis exfoliative [Unknown]
  - Diarrhoea [Unknown]
  - Drug interaction [Unknown]
  - Palmar-plantar erythrodysaesthesia syndrome [Unknown]
  - Abdominal pain [Unknown]
